FAERS Safety Report 5130633-9 (Version None)
Quarter: 2006Q4

REPORT INFORMATION
  Report Type: 
  Country: None (occurrence: None)
  Receive Date: 20061019
  Receipt Date: 20060928
  Transmission Date: 20070319
  Serious: Yes (Hospitalization)
  Sender: FDA-Public Use
  Company Number: 2006AP04542

PATIENT
  Age: 27307 Day
  Sex: Male
  Weight: 65 kg

DRUGS (8)
  1. ZOLADEX [Suspect]
     Indication: PROSTATE CANCER
     Route: 058
     Dates: start: 20060527, end: 20060826
  2. AMLODIN [Suspect]
     Indication: HYPERTENSION
     Route: 048
     Dates: start: 20060613, end: 20060911
  3. ACECOL [Concomitant]
     Indication: HYPERTENSION
     Route: 048
     Dates: start: 20000727
  4. ADALAT [Concomitant]
     Indication: HYPERTENSION
     Route: 048
     Dates: start: 20000804, end: 20060612
  5. MIKELAN LA [Concomitant]
     Indication: HYPERTENSION
     Route: 048
     Dates: start: 20000810
  6. AM [Concomitant]
     Indication: GASTRITIS
     Route: 048
     Dates: start: 20041130
  7. URINORM [Concomitant]
     Indication: HYPERURICAEMIA
     Route: 048
     Dates: start: 20050222
  8. ALLOPURINOL [Concomitant]

REACTIONS (2)
  - HAEMOLYTIC ANAEMIA [None]
  - PLATELET COUNT DECREASED [None]
